FAERS Safety Report 17262796 (Version 1)
Quarter: 2020Q1

REPORT INFORMATION
  Report Type: Spontaneous
  Country: FR (occurrence: FR)
  Receive Date: 20200113
  Receipt Date: 20200113
  Transmission Date: 20200409
  Serious: Yes (Hospitalization)
  Sender: FDA-Public Use
  Company Number: FR-TEVA-2020-FR-1166879

PATIENT
  Age: 57 Year
  Sex: Male
  Weight: 66 kg

DRUGS (10)
  1. ZOPICLONE [Suspect]
     Active Substance: ZOPICLONE
     Indication: INSOMNIA
     Dosage: 9 MG
     Route: 048
     Dates: start: 20191012
  2. BISOCE 2,5 MG, COMPRIME PELLICULE SECABLE [Suspect]
     Active Substance: BISOPROLOL FUMARATE
     Indication: HYPERTENSION
     Dosage: 2.5 MG
     Route: 048
     Dates: end: 20191129
  3. ENDOXAN [Suspect]
     Active Substance: CYCLOPHOSPHAMIDE
     Indication: CONNECTIVE TISSUE DISORDER
     Dosage: 1.2 G
     Route: 041
     Dates: start: 20190823, end: 20191018
  4. LAROSCORBINE [Concomitant]
     Active Substance: ASCORBIC ACID
  5. DOLIPRANE [Concomitant]
     Active Substance: ACETAMINOPHEN
     Indication: PRODUCT USED FOR UNKNOWN INDICATION
  6. RISEDRONATE MONOSODIQUE ANHYDRE [Concomitant]
     Active Substance: RISEDRONATE SODIUM
     Indication: PRODUCT USED FOR UNKNOWN INDICATION
  7. RAMIPRIL. [Suspect]
     Active Substance: RAMIPRIL
     Indication: HYPERTENSION
     Dosage: 2.5 MG
     Route: 048
     Dates: end: 20191129
  8. ACUPAN [Concomitant]
     Active Substance: NEFOPAM HYDROCHLORIDE
     Indication: PRODUCT USED FOR UNKNOWN INDICATION
  9. CALCIDOSE VITAMINE D, POUDRE ORALE EN SACHET-DOSE [Concomitant]
     Active Substance: CALCIUM\CHOLECALCIFEROL
     Indication: PRODUCT USED FOR UNKNOWN INDICATION
  10. CORTANCYL [Concomitant]
     Active Substance: PREDNISONE
     Indication: PRODUCT USED FOR UNKNOWN INDICATION

REACTIONS (2)
  - Interstitial lung disease [Not Recovered/Not Resolved]
  - Dyspnoea exertional [Recovered/Resolved with Sequelae]

NARRATIVE: CASE EVENT DATE: 20191018
